FAERS Safety Report 7083843-8 (Version None)
Quarter: 2010Q4

REPORT INFORMATION
  Report Type: 
  Country: None (occurrence: None)
  Receive Date: 20101104
  Receipt Date: 20101102
  Transmission Date: 20110411
  Serious: Yes (Other)
  Sender: FDA-Public Use
  Company Number: US-BRISTOL-MYERS SQUIBB COMPANY-15364532

PATIENT

DRUGS (2)
  1. ORENCIA [Suspect]
  2. METHOTREXATE [Suspect]

REACTIONS (2)
  - HEPATIC CIRRHOSIS [None]
  - HEPATITIS [None]
